FAERS Safety Report 18920303 (Version 1)
Quarter: 2021Q1

REPORT INFORMATION
  Report Type: Spontaneous
  Country: US (occurrence: US)
  Receive Date: 20210222
  Receipt Date: 20210222
  Transmission Date: 20210420
  Serious: No
  Sender: FDA-Public Use
  Company Number: US-BEH-2021128633

PATIENT

DRUGS (2)
  1. HIZENTRA [Suspect]
     Active Substance: HUMAN IMMUNOGLOBULIN G
     Route: 065
  2. POTASSIUM [Concomitant]
     Active Substance: POTASSIUM

REACTIONS (2)
  - Muscle spasms [Unknown]
  - Infusion site bruising [Unknown]
